FAERS Safety Report 5226600-7 (Version None)
Quarter: 2007Q1

REPORT INFORMATION
  Report Type: 
  Country: None (occurrence: None)
  Receive Date: 20070201
  Receipt Date: 20070130
  Transmission Date: 20070707
  Serious: Yes (Other)
  Sender: FDA-Public Use
  Company Number: JP-BOEHRINGER INGELHEIM PHARMACEUTICALS, INC.-2007-BP-01527YA

PATIENT
  Age: 70 Year
  Sex: Male

DRUGS (9)
  1. HARNAL (TAMSULOSIN) ORODISPERSABLE CR [Suspect]
     Indication: DYSURIA
     Route: 048
     Dates: start: 20060216, end: 20070114
  2. GASTER D [Concomitant]
  3. ADALAT [Concomitant]
     Route: 048
  4. ZESTRIL [Concomitant]
     Route: 048
  5. DIOVAN [Concomitant]
     Route: 048
  6. ASPIRIN [Concomitant]
     Route: 048
  7. ADONA [Concomitant]
     Route: 048
  8. DIAMOX [Concomitant]
     Dates: start: 20070111
  9. ASPARA K [Concomitant]
     Dates: start: 20070111

REACTIONS (2)
  - DYSURIA [None]
  - INTRAOCULAR PRESSURE INCREASED [None]
